FAERS Safety Report 9417163 (Version 1)
Quarter: 2013Q3

REPORT INFORMATION
  Report Type: Spontaneous
  Country: BE (occurrence: BE)
  Receive Date: 20130724
  Receipt Date: 20130724
  Transmission Date: 20140515
  Serious: Yes (Death)
  Sender: FDA-Public Use
  Company Number: BE-B.I. PHARMACEUTICALS,INC./RIDGEFIELD-2013-BL-00354BL

PATIENT
  Sex: Male

DRUGS (8)
  1. PRADAXA [Suspect]
     Indication: ATRIAL FIBRILLATION
     Dosage: 300 MG
     Dates: start: 20130327, end: 20130403
  2. COVERSYL [Concomitant]
     Indication: HYPERTENSION
  3. ZOCOR [Concomitant]
     Indication: HYPERCHOLESTEROLAEMIA
  4. ALLOPURINOL [Concomitant]
     Indication: GOUT
  5. EFEXOR EXEL [Concomitant]
     Indication: DEPRESSION
  6. MATRIFEN [Concomitant]
     Indication: PAIN
  7. RIVOTRIL [Concomitant]
     Indication: PAIN
  8. RIVOTRIL [Concomitant]
     Indication: SLEEP DISORDER

REACTIONS (1)
  - Gastrointestinal haemorrhage [Fatal]
